FAERS Safety Report 6936808-8 (Version None)
Quarter: 2010Q3

REPORT INFORMATION
  Report Type: 
  Country: None (occurrence: None)
  Receive Date: 20100818
  Receipt Date: 20100804
  Transmission Date: 20110219
  Serious: Yes (Life-Threatening, Hospitalization, Other)
  Sender: FDA-Public Use
  Company Number: AUR-APL-2010-01948

PATIENT
  Age: 58 Year
  Sex: Male
  Weight: 130 kg

DRUGS (3)
  1. AMOXICILLIN [Suspect]
     Indication: TOOTHACHE
     Dosage: 1 GRAM - X1- ORAL
     Route: 048
  2. CANDESARTAN/HYDROCHLOROTHIAZIDE [Concomitant]
  3. ROSIGLITAZONE/METFORMIN [Concomitant]

REACTIONS (11)
  - ABDOMINAL PAIN UPPER [None]
  - ACUTE MYOCARDIAL INFARCTION [None]
  - ASTHENIA [None]
  - CORONARY ARTERY OCCLUSION [None]
  - FEELING HOT [None]
  - HYPOTENSION [None]
  - LEFT VENTRICULAR HYPERTROPHY [None]
  - PERIORBITAL OEDEMA [None]
  - SKIN TEST POSITIVE [None]
  - TACHYCARDIA [None]
  - URTICARIA [None]
